FAERS Safety Report 16613987 (Version 1)
Quarter: 2019Q3

REPORT INFORMATION
  Report Type: Spontaneous
  Country: US (occurrence: US)
  Receive Date: 20190723
  Receipt Date: 20190723
  Transmission Date: 20191004
  Serious: Yes (Other)
  Sender: FDA-Public Use
  Company Number: US-SA-2019SA197406

PATIENT
  Sex: Female

DRUGS (1)
  1. DUPIXENT [Suspect]
     Active Substance: DUPILUMAB
     Indication: ECZEMA
     Dosage: UNK UNK, 1X

REACTIONS (5)
  - Erythema [Unknown]
  - Therapeutic response decreased [Unknown]
  - Necrosis [Unknown]
  - Swelling [Unknown]
  - Ulcer [Unknown]
